FAERS Safety Report 14624089 (Version 1)
Quarter: 2018Q1

REPORT INFORMATION
  Report Type: Spontaneous
  Country: US (occurrence: US)
  Receive Date: 20180309
  Receipt Date: 20180309
  Transmission Date: 20180509
  Serious: Yes (Hospitalization)
  Sender: FDA-Public Use
  Company Number: None

PATIENT
  Age: 70 Year
  Sex: Female
  Weight: 62.1 kg

DRUGS (1)
  1. VALSARTAN TAB [Suspect]
     Active Substance: VALSARTAN
     Indication: ANGIOEDEMA
     Route: 048

REACTIONS (1)
  - Angioedema [None]

NARRATIVE: CASE EVENT DATE: 20180223
